FAERS Safety Report 12341970 (Version 3)
Quarter: 2016Q3

REPORT INFORMATION
  Report Type: Spontaneous
  Country: US (occurrence: US)
  Receive Date: 20160506
  Receipt Date: 20160727
  Transmission Date: 20161109
  Serious: No
  Sender: FDA-Public Use
  Company Number: US-009507513-1604USA016835

PATIENT
  Age: 2 Day

DRUGS (3)
  1. TICE BCG [Suspect]
     Active Substance: BACILLUS CALMETTE-GUERIN SUBSTRAIN TICE LIVE ANTIGEN
     Indication: PROPHYLAXIS
     Dosage: 2 MG, ONCE
     Route: 023
     Dates: start: 20160416
  2. BCG VACCINE [Suspect]
     Active Substance: BCG VACCINE
     Indication: PROPHYLAXIS
  3. MK-0000 [Suspect]
     Active Substance: INVESTIGATIONAL PRODUCT
     Dosage: UNK

REACTIONS (3)
  - Overdose [Unknown]
  - Incorrect route of drug administration [Unknown]
  - Product name confusion [Unknown]

NARRATIVE: CASE EVENT DATE: 20160416
